FAERS Safety Report 8887646 (Version 3)
Quarter: 2012Q4

REPORT INFORMATION
  Report Type: 
  Country: JP (occurrence: JP)
  Receive Date: 20121106
  Receipt Date: 20121212
  Transmission Date: 20130627
  Serious: Yes (Hospitalization)
  Sender: FDA-Public Use
  Company Number: JP-EISAI INC-E2090-02386-SPO-JP

PATIENT
  Age: 78 Year
  Sex: Male

DRUGS (6)
  1. TRERIEF [Suspect]
     Indication: PARKINSON^S DISEASE
     Route: 048
     Dates: start: 20121013, end: 20121025
  2. MADOPAR [Concomitant]
     Indication: PARKINSON^S DISEASE
     Dosage: 3 tablets daily
     Dates: start: 20101112, end: 20121025
  3. SYMMETREL [Concomitant]
     Indication: PARKINSON^S DISEASE
     Route: 048
     Dates: start: 20110611, end: 20121025
  4. WARFARIN [Concomitant]
     Indication: ATRIAL FIBRILLATION
     Route: 048
     Dates: start: 20050201, end: 20121025
  5. AMIODARONE HYDROCHLORIDE [Concomitant]
     Indication: ATRIAL FIBRILLATION
     Route: 048
     Dates: start: 20090704, end: 20121025
  6. ALDACTONE A [Concomitant]
     Indication: CARDIAC FAILURE
     Route: 048
     Dates: start: 20110611, end: 20121025

REACTIONS (3)
  - Renal failure acute [Recovered/Resolved]
  - Hepatic function abnormal [Unknown]
  - Blood creatine phosphokinase increased [Recovered/Resolved]
